FAERS Safety Report 5086224-1 (Version None)
Quarter: 2006Q3

REPORT INFORMATION
  Report Type: 
  Country: None (occurrence: None)
  Receive Date: 20060823
  Receipt Date: 20060817
  Transmission Date: 20061208
  Serious: Yes (Other)
  Sender: FDA-Public Use
  Company Number: US-JNJFOC-20060405082

PATIENT
  Sex: Female
  Weight: 68.04 kg

DRUGS (7)
  1. REMICADE [Suspect]
     Route: 042
  2. REMICADE [Suspect]
     Dosage: 34 INFUSIONS ON UNKNOWN DATES.
     Route: 042
  3. REMICADE [Suspect]
     Indication: CROHN'S DISEASE
     Dosage: 4 VIALS.
     Route: 042
  4. CINNAMON CAPSULES [Suspect]
     Indication: DRUG USE FOR UNKNOWN INDICATION
  5. TYLENOL [Concomitant]
     Indication: PAIN
  6. TOPROL-XL [Concomitant]
  7. DIGOXIN [Concomitant]

REACTIONS (2)
  - EMPHYSEMA [None]
  - RASH PRURITIC [None]
